FAERS Safety Report 8227240-8 (Version None)
Quarter: 2012Q1

REPORT INFORMATION
  Report Type: 
  Country: None (occurrence: None)
  Receive Date: 20120322
  Receipt Date: 20120315
  Transmission Date: 20120608
  Serious: Yes (Other)
  Sender: FDA-Public Use
  Company Number: US-US-EMD SERONO, INC.-7119818

PATIENT
  Sex: Female

DRUGS (7)
  1. CELEXA [Concomitant]
     Indication: ANXIETY
  2. CLARITIN [Concomitant]
     Indication: HYPERSENSITIVITY
  3. XANAX [Concomitant]
     Indication: ANXIETY
  4. REBIF [Suspect]
     Indication: PRODUCT USED FOR UNKNOWN INDICATION
     Route: 048
     Dates: start: 20080305
  5. PROTONIX [Concomitant]
     Indication: GASTROOESOPHAGEAL REFLUX DISEASE
  6. ZOCOR [Concomitant]
     Indication: BLOOD CHOLESTEROL INCREASED
  7. SYNTHROID [Concomitant]
     Indication: BASEDOW'S DISEASE

REACTIONS (1)
  - BREAST CANCER [None]
